FAERS Safety Report 11747146 (Version 2)
Quarter: 2015Q4

REPORT INFORMATION
  Report Type: Spontaneous
  Country: JP (occurrence: JP)
  Receive Date: 20151117
  Receipt Date: 20151119
  Transmission Date: 20160304
  Serious: Yes (Hospitalization)
  Sender: FDA-Public Use
  Company Number: JP-B.I. PHARMACEUTICALS,INC./RIDGEFIELD-2015-BI-63266NB

PATIENT
  Age: 68 Year
  Sex: Female

DRUGS (5)
  1. GILOTRIF [Suspect]
     Active Substance: AFATINIB
     Indication: LUNG NEOPLASM MALIGNANT
     Dosage: 40 MG
     Route: 048
     Dates: start: 20150513, end: 20151006
  2. VIBRAMYCIN [Concomitant]
     Active Substance: DOXYCYCLINE
     Indication: XEROSIS
  3. MINOMYCIN [Concomitant]
     Active Substance: MINOCYCLINE HYDROCHLORIDE
     Indication: XEROSIS
  4. MINOMYCIN [Concomitant]
     Active Substance: MINOCYCLINE HYDROCHLORIDE
     Indication: PARONYCHIA
     Dosage: 100 MG
     Route: 048
     Dates: start: 20150909, end: 20151006
  5. VIBRAMYCIN [Concomitant]
     Active Substance: DOXYCYCLINE
     Indication: PARONYCHIA
     Dosage: 100 MG
     Route: 048
     Dates: start: 20150617, end: 20150908

REACTIONS (1)
  - Pancytopenia [Not Recovered/Not Resolved]

NARRATIVE: CASE EVENT DATE: 20151007
